FAERS Safety Report 14906708 (Version 1)
Quarter: 2018Q2

REPORT INFORMATION
  Report Type: Spontaneous
  Country: US (occurrence: US)
  Receive Date: 20180517
  Receipt Date: 20180517
  Transmission Date: 20180711
  Serious: No
  Sender: FDA-Public Use
  Company Number: US-SA-2017SA056132

PATIENT
  Age: 68 Year
  Sex: Female
  Weight: 56.69 kg

DRUGS (17)
  1. SOLOSTAR [Suspect]
     Active Substance: DEVICE
     Indication: TYPE 1 DIABETES MELLITUS
     Dates: start: 20170315, end: 20170330
  2. SOLOSTAR [Suspect]
     Active Substance: DEVICE
     Indication: TYPE 1 DIABETES MELLITUS
     Dates: start: 20170315, end: 20170330
  3. LANTUS SOLOSTAR [Suspect]
     Active Substance: INSULIN GLARGINE
     Indication: TYPE 1 DIABETES MELLITUS
     Dosage: DOSE- 18 UNITS IN MORNING AND 14 UNITS IN EVENING
     Route: 051
     Dates: start: 20170315, end: 20170330
  4. LANTUS SOLOSTAR [Suspect]
     Active Substance: INSULIN GLARGINE
     Indication: TYPE 1 DIABETES MELLITUS
     Dosage: DOSE- 18 UNITS IN MORNING AND 14 UNITS IN EVENING
     Route: 051
     Dates: start: 20170315, end: 20170330
  5. BUPROPION. [Concomitant]
     Active Substance: BUPROPION
     Indication: DEPRESSION
     Dosage: 200 MG?1 AM 14 PM
     Route: 065
     Dates: start: 2010
  6. SOLOSTAR [Suspect]
     Active Substance: DEVICE
     Indication: TYPE 1 DIABETES MELLITUS
     Dates: start: 20161223, end: 2017
  7. SOLOSTAR [Suspect]
     Active Substance: DEVICE
     Indication: TYPE 1 DIABETES MELLITUS
     Dates: start: 20161223, end: 2017
  8. LANTUS SOLOSTAR [Suspect]
     Active Substance: INSULIN GLARGINE
     Indication: TYPE 1 DIABETES MELLITUS
     Dosage: DOSE- 18 UNITS IN MORNING AND 14 UNITS IN EVENING
     Route: 051
     Dates: start: 20161223, end: 2017
  9. CLONIDINE. [Concomitant]
     Active Substance: CLONIDINE
     Indication: CARDIAC DISORDER
     Dosage: STRENGTH: 0.1 MG
     Route: 065
     Dates: start: 201608
  10. LEVOTHYROXINE. [Concomitant]
     Active Substance: LEVOTHYROXINE
     Indication: THYROID DISORDER
     Dosage: TREATMENT START DATE: 7 YEARS AGO?175 MG
     Route: 065
     Dates: start: 2010
  11. LANTUS SOLOSTAR [Suspect]
     Active Substance: INSULIN GLARGINE
     Indication: TYPE 1 DIABETES MELLITUS
     Dosage: DOSE- 18 UNITS IN MORNING AND 14 UNITS IN EVENING
     Route: 051
     Dates: start: 20161223, end: 2017
  12. HUMALOG [Concomitant]
     Active Substance: INSULIN LISPRO
     Indication: DIABETES MELLITUS
     Dosage: START DATE: 39 YEARS AGO?SLIDING SCALE
     Route: 065
     Dates: start: 1978
  13. SOLOSTAR [Suspect]
     Active Substance: DEVICE
     Indication: TYPE 1 DIABETES MELLITUS
     Dates: start: 20170315, end: 20170330
  14. METOPROLOL. [Concomitant]
     Active Substance: METOPROLOL
     Indication: CARDIAC DISORDER
     Dosage: 25 MG
     Route: 065
     Dates: start: 201608
  15. SOLOSTAR [Suspect]
     Active Substance: DEVICE
     Indication: TYPE 1 DIABETES MELLITUS
     Dates: start: 20161223, end: 2017
  16. LANTUS SOLOSTAR [Suspect]
     Active Substance: INSULIN GLARGINE
     Indication: TYPE 1 DIABETES MELLITUS
     Dosage: DOSE- 18 UNITS IN MORNING AND 14 UNITS IN EVENING
     Route: 051
     Dates: start: 20161223, end: 2017
  17. LANTUS SOLOSTAR [Suspect]
     Active Substance: INSULIN GLARGINE
     Indication: TYPE 1 DIABETES MELLITUS
     Dosage: DOSE- 18 UNITS IN MORNING AND 14 UNITS IN EVENING
     Route: 051
     Dates: start: 20170315, end: 20170330

REACTIONS (4)
  - Device issue [Unknown]
  - Drug ineffective [Unknown]
  - Blood glucose abnormal [Unknown]
  - Product use issue [Unknown]

NARRATIVE: CASE EVENT DATE: 20161223
